FAERS Safety Report 6256841-1 (Version None)
Quarter: 2009Q3

REPORT INFORMATION
  Report Type: 
  Country: None (occurrence: None)
  Receive Date: 20090706
  Receipt Date: 20090623
  Transmission Date: 20100115
  Serious: Yes (Hospitalization, Other)
  Sender: FDA-Public Use
  Company Number: PHEH2009US05100

PATIENT
  Age: 88 Year
  Sex: Female

DRUGS (8)
  1. RECLAST [Suspect]
     Indication: SENILE OSTEOPOROSIS
     Dosage: 5 MG
     Route: 042
     Dates: start: 20090408
  2. RAMIPRIL [Concomitant]
  3. SIMVASTATIN [Concomitant]
  4. COLESEVELAM [Concomitant]
  5. COENZYME Q10 [Concomitant]
  6. OYST-CAL-D [Concomitant]
  7. HYDROCORTISONE [Concomitant]
  8. LEVOTHYROXINE SODIUM [Concomitant]

REACTIONS (8)
  - BRONCHITIS [None]
  - DIARRHOEA [None]
  - GAIT DISTURBANCE [None]
  - GENERAL PHYSICAL HEALTH DETERIORATION [None]
  - NAUSEA [None]
  - PAIN [None]
  - VOMITING [None]
  - WEIGHT DECREASED [None]
